FAERS Safety Report 19611132 (Version 2)
Quarter: 2021Q3

REPORT INFORMATION
  Report Type: Spontaneous
  Country: US (occurrence: US)
  Receive Date: 20210726
  Receipt Date: 20210902
  Transmission Date: 20211014
  Serious: Yes (Hospitalization, Other)
  Sender: FDA-Public Use
  Company Number: US-PFIZER INC-2021881313

PATIENT
  Age: 74 Year
  Sex: Male
  Weight: 70.31 kg

DRUGS (5)
  1. GABAPENTIN. [Suspect]
     Active Substance: GABAPENTIN
     Indication: PAIN
     Dosage: 400 MG
  2. GABAPENTIN. [Suspect]
     Active Substance: GABAPENTIN
     Dosage: 2400 MG
  3. GABAPENTIN. [Suspect]
     Active Substance: GABAPENTIN
     Dosage: 300 MG
  4. GABAPENTIN. [Suspect]
     Active Substance: GABAPENTIN
     Dosage: UP TO 3200MG
  5. GABAPENTIN. [Suspect]
     Active Substance: GABAPENTIN
     Dosage: 100 MG

REACTIONS (24)
  - Upper limb fracture [Unknown]
  - Nerve compression [Unknown]
  - Dyspepsia [Unknown]
  - Heart rate abnormal [Unknown]
  - Fracture [Unknown]
  - Weight decreased [Unknown]
  - Dyspnoea [Unknown]
  - Condition aggravated [Unknown]
  - Feeding disorder [Unknown]
  - Sexual dysfunction [Unknown]
  - Chest discomfort [Unknown]
  - Post-traumatic stress disorder [Unknown]
  - Cardiac failure [Unknown]
  - Depression [Unknown]
  - Blood pressure abnormal [Unknown]
  - Gait disturbance [Recovered/Resolved]
  - Muscular weakness [Not Recovered/Not Resolved]
  - Stress [Unknown]
  - Hypoaesthesia [Unknown]
  - Fall [Unknown]
  - Dysphonia [Unknown]
  - Malaise [Unknown]
  - Diarrhoea [Unknown]
  - Off label use [Unknown]

NARRATIVE: CASE EVENT DATE: 202102
